FAERS Safety Report 24183894 (Version 1)
Quarter: 2024Q3

REPORT INFORMATION
  Report Type: Spontaneous
  Country: US (occurrence: None)
  Receive Date: 20240806
  Receipt Date: 20240806
  Transmission Date: 20241017
  Serious: Yes (Hospitalization)
  Sender: Public
  Company Number: None

PATIENT
  Age: 80 Year
  Sex: Female

DRUGS (1)
  1. NUPLAZID [Suspect]
     Active Substance: PIMAVANSERIN TARTRATE
     Indication: Dementia
     Dosage: 34 MG DAILY ORAL
     Route: 048
     Dates: start: 20240514

REACTIONS (2)
  - Confusional state [None]
  - Irritability [None]

NARRATIVE: CASE EVENT DATE: 20240801
